FAERS Safety Report 6083134-8 (Version None)
Quarter: 2009Q1

REPORT INFORMATION
  Report Type: 
  Country: None (occurrence: None)
  Receive Date: 20090213
  Receipt Date: 20090213
  Transmission Date: 20090719
  Serious: Yes (Other)
  Sender: FDA-Public Use
  Company Number: None

PATIENT
  Sex: Female
  Weight: 54.4316 kg

DRUGS (1)
  1. INDERAL [Suspect]
     Dosage: 120MG QD PO
     Route: 048
     Dates: start: 20070314

REACTIONS (1)
  - DIARRHOEA [None]
